FAERS Safety Report 5951304-2 (Version None)
Quarter: 2008Q4

REPORT INFORMATION
  Report Type: 
  Country: None (occurrence: None)
  Receive Date: 20081111
  Receipt Date: 20081111
  Transmission Date: 20090506
  Serious: Yes (Hospitalization)
  Sender: FDA-Public Use
  Company Number: None

PATIENT
  Sex: Male
  Weight: 85 kg

DRUGS (2)
  1. TAXOTERE [Suspect]
     Dosage: 155 MG
  2. PREDNISONE TAB [Suspect]
     Dosage: 40 MG

REACTIONS (1)
  - BLOOD GLUCOSE INCREASED [None]
